FAERS Safety Report 4375724-5 (Version None)
Quarter: 2004Q2

REPORT INFORMATION
  Report Type: 
  Country: None (occurrence: None)
  Receive Date: 20040607
  Receipt Date: 20040520
  Transmission Date: 20050107
  Serious: Yes (Life-Threatening, Hospitalization)
  Sender: FDA-Public Use
  Company Number: 2004-116297-NL

PATIENT
  Age: 78 Year
  Sex: Female

DRUGS (13)
  1. DANAPAROID SODIUM [Suspect]
     Indication: DISSEMINATED INTRAVASCULAR COAGULATION
     Dosage: 1250 ANTI_XA/2500 ANTI_XA/1250 ANTI_XA INTRAVENOUS (NOS)
     Route: 042
     Dates: start: 20030413, end: 20030413
  2. DANAPAROID SODIUM [Suspect]
     Indication: DISSEMINATED INTRAVASCULAR COAGULATION
     Dosage: 1250 ANTI_XA/2500 ANTI_XA/1250 ANTI_XA INTRAVENOUS (NOS)
     Route: 042
     Dates: start: 20030414, end: 20030416
  3. DANAPAROID SODIUM [Suspect]
     Indication: DISSEMINATED INTRAVASCULAR COAGULATION
     Dosage: 1250 ANTI_XA/2500 ANTI_XA/1250 ANTI_XA INTRAVENOUS (NOS)
     Route: 042
     Dates: start: 20030417, end: 20030417
  4. GABEXATE MESILATE [Concomitant]
  5. SULPERAZON [Concomitant]
  6. GLYCEOL [Concomitant]
  7. DOPAMINE HYDROCHLORIDE [Concomitant]
  8. FAMOTIDINE [Concomitant]
  9. HUMAN RED BLOOD CELLS [Concomitant]
  10. NORMAL HUMAN PLASMA [Concomitant]
  11. NICARDIPINE HYDROCHLORIDE [Concomitant]
  12. NITRAZEPAM [Concomitant]
  13. FENTANYL CITRATE [Concomitant]

REACTIONS (1)
  - ANAEMIA [None]
